FAERS Safety Report 4278846-2 (Version None)
Quarter: 2004Q1

REPORT INFORMATION
  Report Type: 
  Country: None (occurrence: None)
  Receive Date: 20040126
  Receipt Date: 20031209
  Transmission Date: 20041129
  Serious: Yes (Hospitalization, Other)
  Sender: FDA-Public Use
  Company Number: 200320436US

PATIENT
  Sex: Female
  Weight: 72 kg

DRUGS (15)
  1. ARAVA [Suspect]
     Indication: RHEUMATOID ARTHRITIS
     Route: 048
     Dates: start: 20010501, end: 20020601
  2. PREMPRO [Concomitant]
     Route: 048
  3. FOSAMAX [Concomitant]
     Route: 048
  4. LIPITOR [Concomitant]
     Route: 048
  5. ENBREL [Concomitant]
     Route: 051
     Dates: start: 19990101
  6. ALLEGRA [Concomitant]
     Dosage: DOSE: UNK
  7. PAXIL [Concomitant]
  8. FLEXERIL [Concomitant]
  9. METHOTREXATE [Concomitant]
     Dates: end: 20010101
  10. CYCLOSPORINE [Concomitant]
     Dates: start: 20011001, end: 20011128
  11. OS-CAL D [Concomitant]
  12. LODINE [Concomitant]
  13. VITAMIN C [Concomitant]
  14. VITAMIN E [Concomitant]
  15. IRON [Concomitant]

REACTIONS (15)
  - ALANINE AMINOTRANSFERASE INCREASED [None]
  - ASPARTATE AMINOTRANSFERASE INCREASED [None]
  - BLOOD AMYLASE INCREASED [None]
  - BLOOD BILIRUBIN INCREASED [None]
  - BLOOD CHOLESTEROL INCREASED [None]
  - COLITIS COLLAGENOUS [None]
  - CONDITION AGGRAVATED [None]
  - DEHYDRATION [None]
  - DIARRHOEA [None]
  - DRUG INEFFECTIVE [None]
  - HAEMATOCRIT DECREASED [None]
  - HAEMOGLOBIN DECREASED [None]
  - LIPASE INCREASED [None]
  - PLATELET COUNT DECREASED [None]
  - RED BLOOD CELL COUNT DECREASED [None]
